FAERS Safety Report 15075147 (Version 1)
Quarter: 2018Q2

REPORT INFORMATION
  Report Type: Report from Study
  Country: US (occurrence: US)
  Receive Date: 20180627
  Receipt Date: 20180627
  Transmission Date: 20180711
  Serious: No
  Sender: FDA-Public Use
  Company Number: US-SAOL THERAPEUTICS-2017SAO01405

PATIENT
  Age: 62 Year
  Sex: Female

DRUGS (27)
  1. BUPIVACAINE. [Suspect]
     Active Substance: BUPIVACAINE
     Dosage: 18.780 MG, \DAY
     Route: 037
  2. BUPIVACAINE. [Suspect]
     Active Substance: BUPIVACAINE
     Dosage: 19.081 MG, \DAY - MAX
     Route: 037
     Dates: start: 20170720
  3. COMPOUNDED BACLOFEN [Suspect]
     Active Substance: BACLOFEN
     Dosage: 103.84 ?G, \DAY - MAX
     Route: 037
     Dates: start: 20170810
  4. DILAUDID [Suspect]
     Active Substance: HYDROMORPHONE HYDROCHLORIDE
     Dosage: 0.6360 MG, \DAY - MAX
     Route: 037
     Dates: start: 20170720
  5. BUPIVACAINE. [Suspect]
     Active Substance: BUPIVACAINE
     Dosage: 19.682 MG, \DAY - MAX
     Route: 037
  6. BUPIVACAINE. [Suspect]
     Active Substance: BUPIVACAINE
     Dosage: 18.318 MG, \DAY
     Route: 037
     Dates: start: 20170811
  7. DILAUDID [Suspect]
     Active Substance: HYDROMORPHONE HYDROCHLORIDE
     Dosage: 0.6260 MG, \DAY
     Route: 037
  8. BUPIVACAINE. [Suspect]
     Active Substance: BUPIVACAINE
     Dosage: 15.575 MG, \DAY - MAX
     Route: 037
     Dates: start: 20170810
  9. BUPIVACAINE. [Suspect]
     Active Substance: BUPIVACAINE
     Dosage: 19.166 MG, \DAY - MAX
     Route: 037
     Dates: start: 20170811
  10. COMPOUNDED BACLOFEN [Suspect]
     Active Substance: BACLOFEN
     Dosage: 124.09 ?G, \DAY
     Route: 037
     Dates: start: 20170802
  11. DILAUDID [Suspect]
     Active Substance: HYDROMORPHONE HYDROCHLORIDE
     Dosage: 0.5192 MG, \DAY - MAX
     Route: 037
     Dates: start: 20170810
  12. COMPOUNDED BACLOFEN [Suspect]
     Active Substance: BACLOFEN
     Dosage: 125.20 ?G, \DAY
     Route: 037
  13. DILAUDID [Suspect]
     Active Substance: HYDROMORPHONE HYDROCHLORIDE
     Dosage: 0.6561 MG, \DAY - MAX
     Route: 037
  14. DILAUDID [Suspect]
     Active Substance: HYDROMORPHONE HYDROCHLORIDE
     Dosage: 0.6204 MG, \DAY
     Route: 037
     Dates: start: 20170802
  15. BUPIVACAINE. [Suspect]
     Active Substance: BUPIVACAINE
     Dosage: 18.914 MG, \DAY - MAX
     Route: 037
     Dates: start: 20170802
  16. COMPOUNDED BACLOFEN [Suspect]
     Active Substance: BACLOFEN
     Dosage: 127.78 ?G, \DAY - MAX
     Route: 037
     Dates: start: 20170811
  17. DILAUDID [Suspect]
     Active Substance: HYDROMORPHONE HYDROCHLORIDE
     Dosage: 0.6305 MG, \DAY - MAX
     Route: 037
     Dates: start: 20170802
  18. BUPIVACAINE. [Suspect]
     Active Substance: BUPIVACAINE
     Dosage: 18.613 MG, \DAY
     Route: 037
     Dates: start: 20170802
  19. COMPOUNDED BACLOFEN [Suspect]
     Active Substance: BACLOFEN
     Dosage: 127.21 ?G, \DAY - MAX
     Route: 037
     Dates: start: 20170720
  20. DILAUDID [Suspect]
     Active Substance: HYDROMORPHONE HYDROCHLORIDE
     Dosage: 0.6389 MG, \DAY - MAX
     Route: 037
     Dates: start: 20170811
  21. BUPIVACAINE. [Suspect]
     Active Substance: BUPIVACAINE
     Dosage: 14.987 MG, \DAY
     Route: 037
     Dates: start: 20170810
  22. COMPOUNDED BACLOFEN [Suspect]
     Active Substance: BACLOFEN
     Dosage: 131.21 ?G, \DAY - MAX
     Route: 037
  23. COMPOUNDED BACLOFEN [Suspect]
     Active Substance: BACLOFEN
     Dosage: 126.09 ?G, \DAY - MAX
     Route: 037
     Dates: start: 20170802
  24. COMPOUNDED BACLOFEN [Suspect]
     Active Substance: BACLOFEN
     Dosage: 99.91 ?G, \DAY
     Route: 037
     Dates: start: 20170810
  25. COMPOUNDED BACLOFEN [Suspect]
     Active Substance: BACLOFEN
     Dosage: 122.12 ?G, \DAY
     Dates: start: 20170811
  26. DILAUDID [Suspect]
     Active Substance: HYDROMORPHONE HYDROCHLORIDE
     Dosage: 0.499 MG, \DAY
     Route: 037
     Dates: start: 20170810
  27. DILAUDID [Suspect]
     Active Substance: HYDROMORPHONE HYDROCHLORIDE
     Dosage: 0.610 MG, \DAY
     Route: 037
     Dates: start: 20170811

REACTIONS (5)
  - Nausea [Recovered/Resolved]
  - Implant site extravasation [Recovered/Resolved]
  - Implant site pain [Recovered/Resolved]
  - Pain [Recovered/Resolved]
  - Sedation [Not Recovered/Not Resolved]

NARRATIVE: CASE EVENT DATE: 20151019
